FAERS Safety Report 10194881 (Version 1)
Quarter: 2014Q2

REPORT INFORMATION
  Report Type: Spontaneous
  Country: US (occurrence: US)
  Receive Date: 20140526
  Receipt Date: 20140526
  Transmission Date: 20141212
  Serious: No
  Sender: FDA-Public Use
  Company Number: US-PFIZER INC-2014141701

PATIENT
  Age: 20 Year
  Sex: Female
  Weight: 68.03 kg

DRUGS (3)
  1. LYRICA [Suspect]
     Indication: FIBROMYALGIA
     Dosage: 75 MG, 2X/DAY
     Dates: start: 2014, end: 201405
  2. LYRICA [Suspect]
     Indication: ANXIETY
  3. WELLBUTRIN [Concomitant]
     Indication: DEPRESSION
     Dosage: 300 MG, DAILY

REACTIONS (1)
  - Pain [Not Recovered/Not Resolved]
